FAERS Safety Report 7730118-7 (Version None)
Quarter: 2011Q3

REPORT INFORMATION
  Report Type: 
  Country: None (occurrence: None)
  Receive Date: 20110906
  Receipt Date: 20110829
  Transmission Date: 20111222
  Serious: Yes (Other)
  Sender: FDA-Public Use
  Company Number: PHHY2011CA77903

PATIENT
  Sex: Female

DRUGS (1)
  1. SANDOSTATIN LAR [Suspect]
     Indication: NEUROENDOCRINE TUMOUR
     Dosage: 30 MG, QMO
     Route: 048
     Dates: start: 20110823

REACTIONS (7)
  - TREMOR [None]
  - PALPITATIONS [None]
  - HEADACHE [None]
  - FATIGUE [None]
  - ANXIETY [None]
  - COLD SWEAT [None]
  - NAUSEA [None]
